FAERS Safety Report 14270495 (Version 1)
Quarter: 2017Q4

REPORT INFORMATION
  Report Type: Spontaneous
  Country: FR (occurrence: FR)
  Receive Date: 20171211
  Receipt Date: 20171211
  Transmission Date: 20180321
  Serious: Yes (Death, Other)
  Sender: FDA-Public Use
  Company Number: FR-OTSUKA-2015_004468

PATIENT
  Age: 13 Year
  Sex: Male

DRUGS (1)
  1. ABILIFY [Suspect]
     Active Substance: ARIPIPRAZOLE
     Indication: AUTISM SPECTRUM DISORDER
     Dosage: 2.5 MG, QD
     Route: 048
     Dates: start: 201410

REACTIONS (4)
  - Agitation [Unknown]
  - Increased appetite [Unknown]
  - Off label use [Unknown]
  - Completed suicide [Fatal]

NARRATIVE: CASE EVENT DATE: 20150507
